FAERS Safety Report 5054554-5 (Version None)
Quarter: 2006Q3

REPORT INFORMATION
  Report Type: 
  Country: None (occurrence: None)
  Receive Date: 20060714
  Receipt Date: 20060626
  Transmission Date: 20061208
  Serious: Yes (Hospitalization)
  Sender: FDA-Public Use
  Company Number: ES200606005878

PATIENT
  Age: 80 Year
  Sex: Female

DRUGS (9)
  1. FORTEO [Suspect]
     Indication: OSTEOPOROSIS
     Dosage: 20 UG, DAILY (1/D), SUBCUTANEOUS
     Route: 058
     Dates: start: 20060526
  2. FORTEO [Concomitant]
  3. URBAL (SUCRALFATE) [Concomitant]
  4. SIMVASTATIN [Concomitant]
  5. FUROSEMIDE [Concomitant]
  6. DIGOXIN [Concomitant]
  7. OMEPRAZOLE [Concomitant]
  8. NOVONORM /DEN/ (REPAGLINIDE) [Concomitant]
  9. SINTROM /NET/ (ACENOCOUMAROL) [Concomitant]

REACTIONS (2)
  - BACK PAIN [None]
  - VOMITING [None]
